FAERS Safety Report 8761663 (Version 5)
Quarter: 2013Q3

REPORT INFORMATION
  Report Type: Spontaneous
  Country: GB (occurrence: None)
  Receive Date: 20120821
  Receipt Date: 20130722
  Transmission Date: 20140515
  Serious: Yes (Congenital Anomaly, Other)
  Sender: FDA-Public Use
  Company Number: AUR-APL-2012-03492

PATIENT
  Age: 1 Day
  Sex: Male
  Weight: 3.1 kg

DRUGS (6)
  1. ZIDOVUDINE [Suspect]
     Indication: PRODUCT USED FOR UNKNOWN INDICATION
     Route: 064
     Dates: start: 20090101, end: 20100610
  2. ISENTRESS [Suspect]
     Indication: HIV INFECTION
     Route: 064
     Dates: start: 20100610
  3. NEVIRAPINE [Suspect]
     Indication: PRODUCT USED FOR UNKNOWN INDICATION
     Route: 064
     Dates: start: 20090101, end: 20100610
  4. LAMIVUDINE [Suspect]
     Indication: PRODUCT USED FOR UNKNOWN INDICATION
     Route: 064
     Dates: start: 20090101, end: 20100610
  5. KALETRA [Suspect]
     Indication: PRODUCT USED FOR UNKNOWN INDICATION
     Route: 064
     Dates: start: 20100710
  6. TENOFOVIR [Suspect]
     Indication: PRODUCT USED FOR UNKNOWN INDICATION
     Route: 064
     Dates: start: 20100610

REACTIONS (4)
  - Volvulus [None]
  - Caesarean section [None]
  - Maternal drugs affecting foetus [None]
  - Foetal exposure during pregnancy [None]
